FAERS Safety Report 8980615 (Version 5)
Quarter: 2013Q2

REPORT INFORMATION
  Report Type: Spontaneous
  Country: US (occurrence: US)
  Receive Date: 20121221
  Receipt Date: 20130402
  Transmission Date: 20140414
  Serious: Yes (Other)
  Sender: FDA-Public Use
  Company Number: US-JNJFOC-20121209141

PATIENT
  Age: 3 Year
  Sex: Female

DRUGS (2)
  1. REMICADE [Suspect]
     Indication: CROHN^S DISEASE
     Dosage: 15-17 INFUSIONS
     Route: 042
     Dates: start: 20050224, end: 200705
  2. AZATHIOPRINE [Concomitant]
     Indication: PRODUCT USED FOR UNKNOWN INDICATION
     Route: 065

REACTIONS (2)
  - Diffuse large B-cell lymphoma [Recovered/Resolved]
  - Epstein-Barr virus test positive [Recovered/Resolved]
